FAERS Safety Report 23597070 (Version 1)
Quarter: 2024Q1

REPORT INFORMATION
  Report Type: Spontaneous
  Country: CN (occurrence: CN)
  Receive Date: 20240305
  Receipt Date: 20240305
  Transmission Date: 20240410
  Serious: Yes (Death)
  Sender: FDA-Public Use
  Company Number: CN-BAXTER-2024BAX013566

PATIENT
  Age: 76 Year
  Sex: Female

DRUGS (1)
  1. DIANEAL [Suspect]
     Active Substance: CALCIUM CHLORIDE\DEXTROSE\MAGNESIUM CHLORIDE\SODIUM CHLORIDE\SODIUM LACTATE
     Dosage: ONE BAG, ONCE A DAY (QD)
     Route: 033

REACTIONS (2)
  - Blood glucose increased [Fatal]
  - Drug ineffective [Unknown]
